FAERS Safety Report 9835688 (Version 1)
Quarter: 2014Q1

REPORT INFORMATION
  Report Type: Spontaneous
  Country: US (occurrence: US)
  Receive Date: 20140122
  Receipt Date: 20140122
  Transmission Date: 20141002
  Serious: Yes (Hospitalization)
  Sender: FDA-Public Use
  Company Number: US-B.I. PHARMACEUTICALS,INC./RIDGEFIELD-2014-BI-02029BP

PATIENT
  Age: 47 Year
  Sex: Female
  Weight: 119.54 kg

DRUGS (3)
  1. PRADAXA [Suspect]
     Indication: THROMBOSIS
     Dosage: 300 MG
     Route: 048
     Dates: start: 2012
  2. SYNTHROID [Concomitant]
     Indication: HYPOTHYROIDISM
     Dosage: 175 MCG
     Route: 048
  3. LASIX [Concomitant]
     Indication: LYMPHOEDEMA
     Route: 048

REACTIONS (5)
  - Convulsion [Recovered/Resolved]
  - Hypotension [Not Recovered/Not Resolved]
  - Syncope [Recovered/Resolved]
  - Dyspepsia [Not Recovered/Not Resolved]
  - Off label use [Not Recovered/Not Resolved]
